FAERS Safety Report 13628801 (Version 1)
Quarter: 2017Q2

REPORT INFORMATION
  Report Type: Spontaneous
  Country: NO (occurrence: NO)
  Receive Date: 20170607
  Receipt Date: 20170607
  Transmission Date: 20170830
  Serious: Yes (Other)
  Sender: FDA-Public Use
  Company Number: NO-PFIZER INC-2017242970

PATIENT
  Age: 50 Year
  Sex: Female
  Weight: 69 kg

DRUGS (2)
  1. DALACIN [Suspect]
     Active Substance: CLINDAMYCIN
     Indication: PHARYNGITIS
  2. DALACIN [Suspect]
     Active Substance: CLINDAMYCIN
     Indication: STREPTOCOCCAL INFECTION
     Dosage: 1 DF, 4X/DAY
     Dates: start: 20170504, end: 20170507

REACTIONS (7)
  - Abdominal pain upper [Recovering/Resolving]
  - Clostridium difficile infection [Not Recovered/Not Resolved]
  - Chest pain [Recovering/Resolving]
  - Dysgeusia [Recovering/Resolving]
  - Diarrhoea [Unknown]
  - Viral upper respiratory tract infection [Recovering/Resolving]
  - Flushing [Recovering/Resolving]

NARRATIVE: CASE EVENT DATE: 20170505
